FAERS Safety Report 23547429 (Version 2)
Quarter: 2024Q1

REPORT INFORMATION
  Report Type: Other
  Country: DE (occurrence: None)
  Receive Date: 20240221
  Receipt Date: 20240314
  Transmission Date: 20240409
  Serious: No
  Sender: FDA-Public Use
  Company Number: DE-ROCHE-3513106

PATIENT
  Age: 39 Year
  Sex: Male

DRUGS (11)
  1. OCRELIZUMAB [Suspect]
     Active Substance: OCRELIZUMAB
     Indication: Relapsing multiple sclerosis
     Route: 042
     Dates: start: 20230118
  2. OCRELIZUMAB [Suspect]
     Active Substance: OCRELIZUMAB
     Route: 042
     Dates: start: 20230809
  3. TWINRIX [Concomitant]
     Active Substance: HEPATITIS A VIRUS STRAIN HM175 ANTIGEN (FORMALDEHYDE INACTIVATED)\HEPATITIS B VIRUS SUBTYPE ADW2 HBS
     Indication: Prophylaxis
     Dosage: DOSE: 1?DOSE FREQUENCY: PRN (AS NEEDED)
     Route: 030
     Dates: start: 20230508, end: 20230508
  4. METHYLPREDNISOLONE [Concomitant]
     Active Substance: METHYLPREDNISOLONE
     Indication: Prophylaxis
     Dosage: DOSE FREQUENCY: ONCE
     Route: 042
     Dates: start: 20230118, end: 20230118
  5. METHYLPREDNISOLONE [Concomitant]
     Active Substance: METHYLPREDNISOLONE
     Dosage: DOSE FREQUENCY: ONCE
     Route: 042
     Dates: start: 20230201, end: 20230201
  6. METHYLPREDNISOLONE [Concomitant]
     Active Substance: METHYLPREDNISOLONE
     Dosage: DOSE FREQUENCY: ONCE
     Route: 042
     Dates: start: 20230809, end: 20230809
  7. METHYLPREDNISOLONE [Concomitant]
     Active Substance: METHYLPREDNISOLONE
     Dosage: DOSE FREQUENCY: ONCE
     Route: 042
     Dates: start: 20240212, end: 20240212
  8. DIMETHINDENE MALEATE [Concomitant]
     Active Substance: DIMETHINDENE MALEATE
     Indication: Prophylaxis
     Dosage: DOSE FREQUENCY: ONCE
     Route: 042
     Dates: start: 20230118, end: 20230118
  9. DIMETHINDENE MALEATE [Concomitant]
     Active Substance: DIMETHINDENE MALEATE
     Dosage: DOSE: UNKNOWN?DOSE FREQUENCY: ONCE
     Route: 042
     Dates: start: 20230201, end: 20230201
  10. DIMETHINDENE MALEATE [Concomitant]
     Active Substance: DIMETHINDENE MALEATE
     Dosage: DOSE FREQUENCY: ONCE
     Route: 042
     Dates: start: 20230809, end: 20230809
  11. DIMETHINDENE MALEATE [Concomitant]
     Active Substance: DIMETHINDENE MALEATE
     Dosage: DOSE: UNKNOWN?DOSE FREQUENCY: ONCE
     Route: 042
     Dates: start: 20240212, end: 20240212

REACTIONS (1)
  - COVID-19 [Recovered/Resolved]

NARRATIVE: CASE EVENT DATE: 20231101
